FAERS Safety Report 12847532 (Version 11)
Quarter: 2019Q1

REPORT INFORMATION
  Report Type: Spontaneous
  Country: US (occurrence: US)
  Receive Date: 20161014
  Receipt Date: 20190208
  Transmission Date: 20190417
  Serious: Yes (Other)
  Sender: FDA-Public Use
  Company Number: US-PFIZER INC-2016478816

PATIENT
  Age: 78 Year
  Sex: Female
  Weight: 95 kg

DRUGS (1)
  1. XELJANZ [Suspect]
     Active Substance: TOFACITINIB CITRATE
     Indication: RHEUMATOID ARTHRITIS
     Dosage: 5 MG, 1X/DAY
     Route: 048

REACTIONS (11)
  - Somnolence [Unknown]
  - Scratch [Unknown]
  - Visual impairment [Unknown]
  - Drug ineffective [Unknown]
  - Skin disorder [Unknown]
  - Cataract [Unknown]
  - Asthenia [Unknown]
  - Weight increased [Unknown]
  - Wound [Unknown]
  - Cough [Unknown]
  - Fall [Unknown]
